FAERS Safety Report 8287913-8 (Version None)
Quarter: 2012Q2

REPORT INFORMATION
  Report Type: 
  Country: None (occurrence: None)
  Receive Date: 20120416
  Receipt Date: 20120404
  Transmission Date: 20120825
  Serious: Yes (Other)
  Sender: FDA-Public Use
  Company Number: JP-BRISTOL-MYERS SQUIBB COMPANY-16499311

PATIENT
  Age: 68 Year
  Sex: Female

DRUGS (7)
  1. CEFDINIR [Concomitant]
     Route: 048
     Dates: start: 20100402, end: 20100403
  2. BRONUCK [Concomitant]
     Dates: start: 20100731, end: 20101127
  3. RINDERON-A [Concomitant]
     Dosage: 2JUN10-31JUL10-2/D
     Dates: start: 20100402, end: 20100602
  4. LEVOFLOXACIN [Concomitant]
     Dosage: 31JUL10-27NOV10-4/D 24MAR11-UNK-4/D
     Dates: start: 20100402, end: 20100602
  5. FLUOROMETHOLONE [Concomitant]
     Dosage: 27NOV10-24MAR11-4/D
     Dates: start: 20110324
  6. HYALEIN [Concomitant]
  7. MITOMYCIN [Suspect]
     Indication: PTERYGIUM OPERATION
     Dosage: 1DF=0.04 PERCENT
     Dates: start: 20100421, end: 20100421

REACTIONS (1)
  - SCLEROMALACIA [None]
